FAERS Safety Report 9100118 (Version 2)
Quarter: 2013Q1

REPORT INFORMATION
  Report Type: Spontaneous
  Country: BR (occurrence: BR)
  Receive Date: 20130215
  Receipt Date: 20130313
  Transmission Date: 20140127
  Serious: Yes (Other)
  Sender: FDA-Public Use
  Company Number: BR-AMGEN-BRASP2013010254

PATIENT
  Age: 26 Year
  Sex: Female
  Weight: 52 kg

DRUGS (6)
  1. ENBREL [Suspect]
     Indication: RHEUMATOID ARTHRITIS
     Dosage: 50 MG, ONCE WEEKLY
     Route: 058
     Dates: end: 201210
  2. ENBREL [Suspect]
     Dosage: 25 MG, TWICE WEEKLY
     Dates: start: 201007
  3. ENBREL [Suspect]
     Dosage: 50 MG, 1X/WK
     Route: 058
  4. INFLIXIMAB [Suspect]
     Dosage: UNK
     Dates: start: 201210
  5. METHOTREXATE [Concomitant]
     Dosage: UNK
  6. PREDNISOLONE [Concomitant]
     Dosage: UNK

REACTIONS (8)
  - Arthralgia [Unknown]
  - Headache [Recovered/Resolved]
  - Joint swelling [Unknown]
  - Tuberculin test positive [Unknown]
  - Immunosuppression [Unknown]
  - Crohn^s disease [Unknown]
  - Infection [Unknown]
  - Tuberculosis [Unknown]
